FAERS Safety Report 5385639-1 (Version None)
Quarter: 2007Q3

REPORT INFORMATION
  Report Type: 
  Country: None (occurrence: None)
  Receive Date: 20070712
  Receipt Date: 20070709
  Transmission Date: 20080115
  Serious: Yes (Other)
  Sender: FDA-Public Use
  Company Number: CH-BRISTOL-MYERS SQUIBB COMPANY-13839188

PATIENT
  Age: 12 Year
  Sex: Male

DRUGS (3)
  1. IRBESARTAN [Suspect]
     Indication: HYPERTENSION
  2. AMLODIPINE [Suspect]
     Indication: HYPERTENSION
     Dosage: DOSE = 0.16 MG/KG BODY WEIGHT ONCE A DAY
  3. METOPROLOL SUCCINATE [Suspect]
     Indication: HYPERTENSION
     Dosage: DOSE = 1.7 MG/KG BODY WEIGHT ONCE A DAY

REACTIONS (1)
  - ANAEMIA [None]
